FAERS Safety Report 13205027 (Version 4)
Quarter: 2017Q1

REPORT INFORMATION
  Report Type: Spontaneous
  Country: US (occurrence: US)
  Receive Date: 20170209
  Receipt Date: 20170307
  Transmission Date: 20170428
  Serious: Yes (Other)
  Sender: FDA-Public Use
  Company Number: US-PFIZER INC-2017058900

PATIENT
  Sex: Male

DRUGS (1)
  1. LYRICA [Suspect]
     Active Substance: PREGABALIN
     Dosage: 2 DF, UNK (2 PILLS)

REACTIONS (4)
  - Multiple fractures [Unknown]
  - Dizziness [Unknown]
  - Confusional state [Unknown]
  - Somnolence [Unknown]
